FAERS Safety Report 16284336 (Version 1)
Quarter: 2019Q2

REPORT INFORMATION
  Report Type: Report from Study
  Country: None (occurrence: US)
  Receive Date: 20190508
  Receipt Date: 20190508
  Transmission Date: 20190711
  Serious: Yes (Hospitalization, Other)
  Sender: FDA-Public Use
  Company Number: US-ABBVIE-19S-163-2765215-00

PATIENT
  Sex: Male

DRUGS (2)
  1. MARINOL [Suspect]
     Active Substance: DRONABINOL
     Indication: PRODUCT USED FOR UNKNOWN INDICATION
     Route: 048
     Dates: start: 2005, end: 2006
  2. MARINOL [Suspect]
     Active Substance: DRONABINOL
     Dosage: 10 MG BID
     Route: 048

REACTIONS (10)
  - Superior mesenteric artery syndrome [Unknown]
  - Hypophagia [Unknown]
  - Vomiting [Unknown]
  - Abdominal distension [Unknown]
  - Abdominal pain [Unknown]
  - Nausea [Unknown]
  - Jejunostomy [Unknown]
  - Weight decreased [Unknown]
  - Weight increased [Unknown]
  - Therapeutic product effect incomplete [Unknown]

NARRATIVE: CASE EVENT DATE: 2019
